FAERS Safety Report 10959886 (Version 1)
Quarter: 2015Q1

REPORT INFORMATION
  Report Type: Spontaneous
  Country: US (occurrence: None)
  Receive Date: 20150325
  Receipt Date: 20150325
  Transmission Date: 20150721
  Serious: Yes (Hospitalization, Other)
  Sender: FDA-Public Use
  Company Number: RAP-0066-2015

PATIENT
  Age: 11 Year
  Sex: Female
  Weight: 31.75 kg

DRUGS (1)
  1. PROCYSBI DELAYED-RELEASE [Suspect]
     Active Substance: CYSTEAMINE BITARTRATE
     Indication: CYSTINOSIS
     Dosage: 750 MG (375 MG, 1 IN 12 HRS, GASTROENTERAL USE
     Dates: start: 201312

REACTIONS (4)
  - Complications of transplanted kidney [None]
  - Nausea [None]
  - Fatigue [None]
  - Malaise [None]
